FAERS Safety Report 18207120 (Version 1)
Quarter: 2020Q3

REPORT INFORMATION
  Report Type: Spontaneous
  Country: US (occurrence: US)
  Receive Date: 20200828
  Receipt Date: 20200828
  Transmission Date: 20201103
  Serious: Yes (Hospitalization, Other)
  Sender: FDA-Public Use
  Company Number: US-HIKMA PHARMACEUTICALS USA INC.-US-H14001-20-03982

PATIENT
  Age: 69 Year
  Sex: Female
  Weight: 55.34 kg

DRUGS (4)
  1. LOSARTAN. [Concomitant]
     Active Substance: LOSARTAN
     Indication: HYPERTENSION
     Dosage: UNKNOWN
     Route: 065
  2. DOXYCYCLINE. [Suspect]
     Active Substance: DOXYCYCLINE
     Indication: SINUSITIS
     Route: 065
     Dates: start: 20200731
  3. PREDNISONE. [Suspect]
     Active Substance: PREDNISONE
     Indication: LUNG DISORDER
     Dosage: UNKNOWN
     Route: 065
  4. ZOFRAN [Concomitant]
     Active Substance: ONDANSETRON HYDROCHLORIDE
     Indication: NAUSEA
     Dosage: UNKNOWN
     Route: 065

REACTIONS (9)
  - Functional gastrointestinal disorder [Unknown]
  - Dehydration [Unknown]
  - Illness [Unknown]
  - Dysphagia [Unknown]
  - Nausea [Unknown]
  - Mental fatigue [Unknown]
  - Muscular weakness [Unknown]
  - Renal disorder [Unknown]
  - Hypoaesthesia [Unknown]

NARRATIVE: CASE EVENT DATE: 20200801
